FAERS Safety Report 9346344 (Version 5)
Quarter: 2013Q3

REPORT INFORMATION
  Report Type: Report from Study
  Country: KR (occurrence: KR)
  Receive Date: 20130613
  Receipt Date: 20130807
  Transmission Date: 20140515
  Serious: Yes (Hospitalization)
  Sender: FDA-Public Use
  Company Number: KR-AMGEN-KORCT2013040635

PATIENT
  Age: 61 Year
  Sex: Female
  Weight: 60 kg

DRUGS (13)
  1. DENOSUMAB [Suspect]
     Indication: PLASMA CELL MYELOMA
     Dosage: UNK
     Route: 065
     Dates: start: 20130503
  2. DARBEPOETIN ALFA [Concomitant]
     Dosage: 420 MUG, UNK
     Route: 058
     Dates: start: 20130516, end: 20130610
  3. THALIDOMIDE [Concomitant]
     Dates: start: 20130418
  4. DEXAMETHASONE [Concomitant]
     Dosage: UNK
     Dates: start: 20130419
  5. LOSARTAN/HYDROCHLOROTHIAZIDE [Concomitant]
     Dosage: 50 MG, UNK
     Route: 048
     Dates: start: 20100615, end: 20130605
  6. SODIUM BICARBONATE [Concomitant]
     Dosage: 60 ML, UNK
     Route: 042
     Dates: start: 20130503, end: 20130616
  7. ZOLPIDEM [Concomitant]
     Dosage: 12.5 MG, UNK
     Route: 048
     Dates: start: 20130531, end: 20130605
  8. CALCIUM [Concomitant]
     Dosage: 500 MG, UNK
     Route: 048
     Dates: start: 20130503
  9. CALCITRIOL [Concomitant]
     Dosage: UNK
     Route: 048
     Dates: start: 20130503
  10. NORMAL SALINE [Concomitant]
     Dosage: 1000 ML, UNK
     Route: 042
     Dates: start: 20130503, end: 20130616
  11. ACETYLSALICYLIC ACID ENTERIC COATED [Concomitant]
     Indication: THROMBOSIS PROPHYLAXIS
     Dosage: 100 MG, QD
     Route: 048
     Dates: start: 20130422, end: 20130611
  12. LANSOPRAZOLE [Concomitant]
     Dosage: 15 MG, UNK
     Route: 048
     Dates: start: 20130504, end: 20130613
  13. OYSTER SHELL CALCIUM [Concomitant]

REACTIONS (1)
  - Blood creatine increased [Recovered/Resolved]
